FAERS Safety Report 7446294-X (Version None)
Quarter: 2011Q2

REPORT INFORMATION
  Report Type: 
  Country: None (occurrence: None)
  Receive Date: 20110429
  Receipt Date: 20100513
  Transmission Date: 20111010
  Serious: No
  Sender: FDA-Public Use
  Company Number: US-ASTRAZENECA-2010SE22022

PATIENT
  Sex: Female

DRUGS (4)
  1. NEXIUM [Suspect]
     Indication: ULCER
     Route: 048
  2. PRILOSEC [Suspect]
     Dosage: OMEPRAZOLE
     Route: 048
  3. LIPITOR [Suspect]
  4. PRILOSEC [Suspect]
     Indication: ULCER
     Dosage: PRILOSEC
     Route: 048

REACTIONS (3)
  - GASTRIC DISORDER [None]
  - DRUG INEFFECTIVE [None]
  - BLADDER DISORDER [None]
